FAERS Safety Report 25759133 (Version 2)
Quarter: 2025Q4

REPORT INFORMATION
  Report Type: Spontaneous
  Country: US (occurrence: US)
  Receive Date: 20250904
  Receipt Date: 20251016
  Transmission Date: 20260118
  Serious: Yes (Other)
  Sender: JOHNSON AND JOHNSON
  Company Number: US-JNJFOC-20250835298

PATIENT

DRUGS (1)
  1. OPSUMIT [Suspect]
     Active Substance: MACITENTAN
     Indication: Product used for unknown indication
     Route: 048
     Dates: start: 20250820, end: 20250825

REACTIONS (5)
  - Lung transplant [Unknown]
  - Thrombosis [Unknown]
  - Dyspnoea [Unknown]
  - Emphysema [Unknown]
  - Paradoxical drug reaction [Unknown]
